FAERS Safety Report 26164021 (Version 1)
Quarter: 2025Q4

REPORT INFORMATION
  Report Type: Spontaneous
  Country: US (occurrence: None)
  Receive Date: 20251216
  Receipt Date: 20251216
  Transmission Date: 20260117
  Serious: Yes (Other)
  Sender: FDA-CTU
  Company Number: None

PATIENT
  Age: 36 Year
  Sex: Female
  Weight: 62.1 kg

DRUGS (1)
  1. NADH [Suspect]
     Active Substance: NADH
     Indication: Chronic fatigue syndrome
     Dosage: OTHER FREQUENCY : 3X A WEEK;
     Route: 058
     Dates: start: 20251206, end: 20251215

REACTIONS (2)
  - Skin texture abnormal [None]
  - Erythema [None]

NARRATIVE: CASE EVENT DATE: 20251215
